FAERS Safety Report 6398618-2 (Version None)
Quarter: 2009Q4

REPORT INFORMATION
  Report Type: 
  Country: None (occurrence: None)
  Receive Date: 20091013
  Receipt Date: 20090930
  Transmission Date: 20100525
  Serious: Yes (Hospitalization)
  Sender: FDA-Public Use
  Company Number: FR-ROCHE-577975

PATIENT
  Sex: Male
  Weight: 87 kg

DRUGS (9)
  1. MYCOPHENOLATE MOFETIL [Suspect]
     Indication: LIVER TRANSPLANT
     Route: 048
     Dates: start: 20071225
  2. CORTANCYL [Suspect]
     Indication: LIVER TRANSPLANT
     Route: 048
     Dates: start: 20071225
  3. CORTANCYL [Suspect]
     Dosage: FREQUENCY REPORTED AS QD
     Route: 048
  4. TACROLIMUS [Suspect]
     Indication: LIVER TRANSPLANT
     Route: 065
     Dates: start: 20071225
  5. TACROLIMUS [Suspect]
     Route: 065
  6. ROVALCYTE [Concomitant]
     Dates: start: 20071227
  7. BACTRIM [Concomitant]
     Dates: start: 20071225
  8. ZYVOXID [Concomitant]
     Dates: start: 20071229
  9. ASPEGIC 1000 [Concomitant]
     Dates: start: 20080421

REACTIONS (1)
  - LIVER ABSCESS [None]
